FAERS Safety Report 20922593 (Version 1)
Quarter: 2022Q2

REPORT INFORMATION
  Report Type: Spontaneous
  Country: US (occurrence: US)
  Receive Date: 20220607
  Receipt Date: 20220607
  Transmission Date: 20220721
  Serious: No
  Sender: FDA-Public Use
  Company Number: US-BRISTOL-MYERS SQUIBB COMPANY-2022-048068

PATIENT
  Age: 78 Year
  Sex: Female

DRUGS (1)
  1. REVLIMID [Suspect]
     Active Substance: LENALIDOMIDE
     Indication: Diffuse large B-cell lymphoma
     Dosage: DOSE: 10 MILLIGRAM, FREQ: TAKE 1 CAPSULE BY MOUTH EVERYDAY FOR 21 DAYS, THEN OFF FOR 7 DAYS
     Route: 048

REACTIONS (1)
  - Intentional product use issue [Unknown]
